FAERS Safety Report 15567622 (Version 3)
Quarter: 2018Q4

REPORT INFORMATION
  Report Type: Report from Study
  Country: CA (occurrence: CA)
  Receive Date: 20181030
  Receipt Date: 20181130
  Transmission Date: 20190205
  Serious: Yes (Other)
  Sender: FDA-Public Use
  Company Number: CA-TEVA-2018-CA-968161

PATIENT
  Sex: Male

DRUGS (3)
  1. OMEGA 3 COMPLEX [Concomitant]
  2. VITAMIN D [Concomitant]
     Active Substance: CHOLECALCIFEROL
  3. COPAXONE [Suspect]
     Active Substance: GLATIRAMER ACETATE
     Indication: MULTIPLE SCLEROSIS
     Route: 058
     Dates: start: 20171025, end: 201810

REACTIONS (8)
  - Hypersensitivity [Unknown]
  - Injection site swelling [Unknown]
  - Rash generalised [Unknown]
  - Swelling face [Unknown]
  - Paraesthesia [Unknown]
  - Pruritus [Unknown]
  - Urticaria [Unknown]
  - Throat tightness [Unknown]
